FAERS Safety Report 23742611 (Version 1)
Quarter: 2024Q2

REPORT INFORMATION
  Report Type: Spontaneous
  Country: FR (occurrence: FR)
  Receive Date: 20240415
  Receipt Date: 20240415
  Transmission Date: 20240716
  Serious: Yes (Life-Threatening)
  Sender: FDA-Public Use
  Company Number: None

PATIENT
  Age: 56 Year
  Sex: Female

DRUGS (5)
  1. VANCOMYCIN [Suspect]
     Active Substance: VANCOMYCIN
     Indication: Antibiotic prophylaxis
     Dosage: UNK
     Route: 065
     Dates: start: 20231229, end: 20231229
  2. PROPOFOL [Suspect]
     Active Substance: PROPOFOL
     Indication: Induction of anaesthesia
     Dosage: UNK
     Route: 065
     Dates: start: 20231229, end: 20231229
  3. KETAMINE [Suspect]
     Active Substance: KETAMINE
     Indication: Induction of anaesthesia
     Dosage: UNK
     Route: 065
     Dates: start: 20231229, end: 20231229
  4. ATRACURIUM [Suspect]
     Active Substance: ATRACURIUM
     Indication: Induction of anaesthesia
     Dosage: UNK
     Route: 065
     Dates: start: 20231229, end: 20231229
  5. XYLOCAINE [Suspect]
     Active Substance: LIDOCAINE HYDROCHLORIDE
     Indication: Induction of anaesthesia
     Dosage: UNK
     Route: 065
     Dates: start: 20231229, end: 20231229

REACTIONS (1)
  - Anaphylactic shock [Recovered/Resolved]

NARRATIVE: CASE EVENT DATE: 20231229
